FAERS Safety Report 5339057-2 (Version None)
Quarter: 2007Q2

REPORT INFORMATION
  Report Type: 
  Country: None (occurrence: None)
  Receive Date: 20070525
  Receipt Date: 20070511
  Transmission Date: 20071010
  Serious: Yes (Other)
  Sender: FDA-Public Use
  Company Number: S06-GER-04879-01

PATIENT
  Age: 33 Year
  Sex: Male
  Weight: 84 kg

DRUGS (5)
  1. ESCITALOPRAM OXALATE [Suspect]
     Indication: DEPRESSION
     Dosage: 10 MG ONCE PO
     Route: 048
     Dates: start: 20061109, end: 20061109
  2. CLONAZEPAM [Suspect]
     Indication: DRUG WITHDRAWAL SYNDROME
     Dosage: 6 MG QD PO
     Route: 047
  3. CLONAZEPAM [Suspect]
     Indication: DRUG WITHDRAWAL SYNDROME
     Dosage: 0.5 MG QD PO
     Route: 048
     Dates: end: 20061106
  4. DOMINAL ^ASTA^ (PROTHIPENDYL HYDROCHLORIDE) [Suspect]
     Indication: SLEEP DISORDER
     Dosage: 80 MG QD PO
     Route: 048
     Dates: start: 20000101, end: 20061113
  5. SUBUTEX [Concomitant]

REACTIONS (6)
  - DRUG WITHDRAWAL CONVULSIONS [None]
  - DRY MOUTH [None]
  - ELECTROENCEPHALOGRAM ABNORMAL [None]
  - FALL [None]
  - LOSS OF CONSCIOUSNESS [None]
  - MUSCLE RIGIDITY [None]
